FAERS Safety Report 20226542 (Version 3)
Quarter: 2022Q2

REPORT INFORMATION
  Report Type: Other
  Country: US (occurrence: None)
  Receive Date: 20211224
  Receipt Date: 20220608
  Transmission Date: 20220721
  Serious: Yes (Hospitalization, Disabling)
  Sender: FDA-Public Use
  Company Number: US-ROCHE-2984620

PATIENT
  Age: 56 Year
  Sex: Male
  Weight: 136.20 kg

DRUGS (6)
  1. XOLAIR [Suspect]
     Active Substance: OMALIZUMAB
     Indication: Asthma
     Route: 058
  2. XOLAIR [Suspect]
     Active Substance: OMALIZUMAB
  3. XOLAIR [Suspect]
     Active Substance: OMALIZUMAB
  4. XOLAIR [Suspect]
     Active Substance: OMALIZUMAB
     Indication: Asthma
     Route: 058
     Dates: start: 2001
  5. XOLAIR [Suspect]
     Active Substance: OMALIZUMAB
     Route: 058
  6. VIMPAT [Concomitant]
     Active Substance: LACOSAMIDE
     Indication: Seizure

REACTIONS (3)
  - Cerebrovascular accident [Not Recovered/Not Resolved]
  - Speech disorder [Unknown]
  - Off label use [Unknown]

NARRATIVE: CASE EVENT DATE: 20171101
